FAERS Safety Report 7438716-5 (Version None)
Quarter: 2011Q2

REPORT INFORMATION
  Report Type: 
  Country: None (occurrence: None)
  Receive Date: 20110426
  Receipt Date: 20110420
  Transmission Date: 20111010
  Serious: Yes (Other)
  Sender: FDA-Public Use
  Company Number: US-PFIZER INC-2011006310

PATIENT
  Sex: Male
  Weight: 99.773 kg

DRUGS (3)
  1. SYNTHROID [Concomitant]
     Indication: SUPPLEMENTATION THERAPY
     Dosage: UNK
     Dates: start: 19880101
  2. NEURONTIN [Suspect]
     Indication: NEUROPATHY PERIPHERAL
     Dosage: UNK
     Dates: start: 20010101
  3. GABAPENTIN [Suspect]
     Dosage: UNK

REACTIONS (4)
  - BLOOD TRIGLYCERIDES INCREASED [None]
  - PROSTATIC DISORDER [None]
  - DRUG INEFFECTIVE [None]
  - NEURALGIA [None]
